FAERS Safety Report 11897798 (Version 1)
Quarter: 2016Q1

REPORT INFORMATION
  Report Type: Spontaneous
  Country: US (occurrence: None)
  Receive Date: 20160106
  Receipt Date: 20160106
  Transmission Date: 20160526
  Serious: Yes (Life-Threatening)
  Sender: FDA-Public Use
  Company Number: None

PATIENT
  Age: 68 Year
  Sex: Male
  Weight: 78.2 kg

DRUGS (1)
  1. BENZTROPINE [Suspect]
     Active Substance: BENZTROPINE
     Dosage: 2 MG UD PO
     Route: 048
     Dates: start: 20150831, end: 20151114

REACTIONS (1)
  - Respiratory distress [None]

NARRATIVE: CASE EVENT DATE: 20151114
